FAERS Safety Report 5294957-7 (Version None)
Quarter: 2007Q2

REPORT INFORMATION
  Report Type: 
  Country: None (occurrence: None)
  Receive Date: 20070412
  Receipt Date: 20070404
  Transmission Date: 20071010
  Serious: Yes (Death)
  Sender: FDA-Public Use
  Company Number: US-ROCHE-483347

PATIENT
  Age: 19 Year
  Sex: Female

DRUGS (6)
  1. CELLCEPT [Suspect]
     Indication: LUPUS NEPHRITIS
     Dosage: FIRST COURSE.
     Route: 065
     Dates: start: 20050715, end: 20060115
  2. CELLCEPT [Suspect]
     Dosage: SECOND COURSE.
     Route: 065
     Dates: start: 20060831, end: 20061022
  3. BACTRIM [Concomitant]
     Dosage: TAKEN DURING FIRST COURSE OF CELLCEPT.
  4. ACYCLOVIR [Concomitant]
     Dosage: TAKEN DURING FIRST COURSE OF CELLCEPT.
  5. DEPO-PROVERA [Concomitant]
     Indication: CONTRACEPTION
     Dosage: TAKEN DURING SECOND COURSE OF CELLCEPT.
     Dates: start: 20060815
  6. IMURAN [Concomitant]
     Indication: LUPUS NEPHRITIS
     Dates: start: 20060115

REACTIONS (12)
  - BETA HAEMOLYTIC STREPTOCOCCAL INFECTION [None]
  - CAESAREAN SECTION [None]
  - CONDITION AGGRAVATED [None]
  - DISSEMINATED INTRAVASCULAR COAGULATION [None]
  - LUPUS NEPHRITIS [None]
  - PNEUMOCOCCAL SEPSIS [None]
  - PNEUMONIA [None]
  - PNEUMONIA STREPTOCOCCAL [None]
  - PRE-ECLAMPSIA [None]
  - PREGNANCY [None]
  - PREMATURE BABY [None]
  - TREATMENT NONCOMPLIANCE [None]
